FAERS Safety Report 4388198-5 (Version None)
Quarter: 2004Q2

REPORT INFORMATION
  Report Type: 
  Country: None (occurrence: None)
  Receive Date: 20040629
  Receipt Date: 20040629
  Transmission Date: 20050107
  Serious: Yes (Death)
  Sender: FDA-Public Use
  Company Number: None

PATIENT
  Age: 71 Year
  Sex: Female
  Weight: 69 kg

DRUGS (1)
  1. TAMOXIFEN 20MG [Suspect]
     Indication: BREAST CANCER
     Dosage: 20MG QDAY PO
     Route: 048
     Dates: start: 20000728, end: 20020427

REACTIONS (1)
  - GLIOBLASTOMA MULTIFORME [None]
